FAERS Safety Report 4881969-8 (Version None)
Quarter: 2006Q1

REPORT INFORMATION
  Report Type: 
  Country: None (occurrence: None)
  Receive Date: 20060117
  Receipt Date: 20060109
  Transmission Date: 20060701
  Serious: Yes (Hospitalization)
  Sender: FDA-Public Use
  Company Number: FR-GLAXOSMITHKLINE-B0406576A

PATIENT
  Age: 75 Year
  Sex: Male

DRUGS (9)
  1. AUGMENTIN '125' [Suspect]
     Dosage: 1G THREE TIMES PER DAY
     Route: 048
     Dates: start: 20050211, end: 20050217
  2. IZILOX [Suspect]
     Dosage: 1UNIT PER DAY
     Route: 048
     Dates: start: 20050214, end: 20050225
  3. DOLIPRANE [Suspect]
     Indication: ARTHROPATHY
     Dosage: 1G THREE TIMES PER DAY
     Route: 048
     Dates: start: 20050211, end: 20050215
  4. BECOTIDE [Concomitant]
     Dosage: 500MCG THREE TIMES PER DAY
     Route: 055
  5. DIAMICRON [Concomitant]
     Dosage: 2UNIT PER DAY
     Route: 048
  6. SERECOR [Concomitant]
     Indication: ATRIAL FLUTTER
     Dosage: 1UNIT PER DAY
     Route: 048
  7. KARDEGIC [Concomitant]
     Dosage: 75MG PER DAY
     Route: 065
  8. BRONCHODUAL [Concomitant]
     Dosage: 2PUFF TWICE PER DAY
     Route: 055
     Dates: end: 20050210
  9. PNEUMOREL [Concomitant]
     Route: 048
     Dates: end: 20050210

REACTIONS (6)
  - ALANINE AMINOTRANSFERASE INCREASED [None]
  - ASPARTATE AMINOTRANSFERASE INCREASED [None]
  - BLOOD ALKALINE PHOSPHATASE INCREASED [None]
  - CHOLESTASIS [None]
  - GAMMA-GLUTAMYLTRANSFERASE INCREASED [None]
  - HEPATOCELLULAR DAMAGE [None]
